FAERS Safety Report 6656133-2 (Version None)
Quarter: 2010Q1

REPORT INFORMATION
  Report Type: 
  Country: None (occurrence: None)
  Receive Date: 20100329
  Receipt Date: 20100322
  Transmission Date: 20100710
  Serious: Yes (Other)
  Sender: FDA-Public Use
  Company Number: D0066094A

PATIENT
  Sex: Female

DRUGS (23)
  1. LAMOTRIGINE [Suspect]
     Indication: DEPRESSION
     Dosage: 100MG TWICE PER DAY
     Route: 048
     Dates: start: 20060301
  2. QUILONUM (LITHIUM ACETATE) [Suspect]
     Indication: DEPRESSION
     Route: 048
     Dates: start: 19910101, end: 20030909
  3. LAMICTAL CD [Suspect]
     Indication: DEPRESSION
     Route: 048
     Dates: start: 20030909
  4. ELMENDOS [Suspect]
     Indication: DEPRESSION
     Route: 048
  5. LAMOTRIGINE [Suspect]
     Indication: DEPRESSION
     Route: 048
  6. STANGYL [Suspect]
     Indication: SLEEP DISORDER
     Dosage: 50MG UNKNOWN
     Route: 048
     Dates: start: 20020727, end: 20030812
  7. ERGENYL CHRONO [Suspect]
     Indication: DEPRESSION
     Route: 048
     Dates: start: 20030409, end: 20030525
  8. AMITRIPTYLINE HCL [Concomitant]
     Dosage: 50MG PER DAY
     Route: 065
     Dates: start: 20030830
  9. BELOC ZOK [Concomitant]
     Dosage: 95MG PER DAY
     Route: 065
  10. JATROSOM [Concomitant]
     Indication: DEPRESSION
     Route: 065
     Dates: start: 19810101, end: 19910101
  11. FLUOXETINE [Concomitant]
     Indication: THERAPEUTIC PROCEDURE
     Route: 065
     Dates: start: 20020526
  12. XIMOVAN [Concomitant]
     Route: 065
     Dates: start: 20030101
  13. AMITRIPTYLINE HCL [Concomitant]
     Dosage: 25MG PER DAY
     Route: 048
  14. THYRONAJOD [Concomitant]
     Dosage: 125MCG UNKNOWN
     Route: 065
  15. METOPROLOL [Concomitant]
     Dosage: 100MG UNKNOWN
     Route: 065
  16. ACETYLSALICYL ACID [Concomitant]
     Dosage: 100MG UNKNOWN
     Route: 048
  17. VITAMIN C [Concomitant]
     Dosage: 100MG UNKNOWN
     Route: 065
  18. OPTOVIT [Concomitant]
     Route: 065
  19. SELENASE [Concomitant]
     Route: 065
  20. WOBENZYM [Concomitant]
     Route: 065
  21. ZINK [Concomitant]
     Route: 065
  22. CALCIUM [Concomitant]
     Route: 065
  23. VITAMIN D [Concomitant]
     Route: 065

REACTIONS (15)
  - ARRHYTHMIA [None]
  - ATRIAL FIBRILLATION [None]
  - BONE DENSITY DECREASED [None]
  - BREAST CANCER [None]
  - DEPRESSION [None]
  - HALLUCINATION [None]
  - HEPATIC ENZYME ABNORMAL [None]
  - HEPATIC STEATOSIS [None]
  - HYPOTHYROIDISM [None]
  - PERSONALITY CHANGE [None]
  - SKIN DISORDER [None]
  - SLEEP DISORDER [None]
  - URINARY INCONTINENCE [None]
  - URINE ANALYSIS ABNORMAL [None]
  - WEIGHT INCREASED [None]
